FAERS Safety Report 7784944-9 (Version None)
Quarter: 2011Q3

REPORT INFORMATION
  Report Type: 
  Country: None (occurrence: None)
  Receive Date: 20110928
  Receipt Date: 20110919
  Transmission Date: 20111222
  Serious: Yes (Hospitalization)
  Sender: FDA-Public Use
  Company Number: US-BAYER-2011-034761

PATIENT
  Age: 18 Year
  Sex: Female
  Weight: 79.365 kg

DRUGS (8)
  1. YASMIN [Suspect]
     Indication: ACNE
     Dosage: UNK
     Dates: start: 20040301, end: 20080101
  2. MINOCYCLINE HCL [Concomitant]
     Indication: ACNE
     Dosage: UNK
     Dates: start: 20000101, end: 20040101
  3. LEXAPRO [Concomitant]
     Indication: ANXIETY
     Dosage: 10 MG, QD
     Dates: start: 20040101
  4. TUMS [CALCIUM CARBONATE] [Concomitant]
     Indication: PAIN
  5. FENTANYL [Concomitant]
     Indication: PAIN
  6. LEXAPRO [Concomitant]
     Indication: DEPRESSION
  7. ACCUTANE [Concomitant]
     Indication: ACNE
     Dosage: UNK
     Dates: start: 20040101, end: 20040101
  8. PEPCID [Concomitant]
     Indication: PAIN

REACTIONS (1)
  - CHOLELITHIASIS [None]
